FAERS Safety Report 10248658 (Version 1)
Quarter: 2014Q2

REPORT INFORMATION
  Report Type: Spontaneous
  Country: US (occurrence: None)
  Receive Date: 20140617
  Receipt Date: 20140617
  Transmission Date: 20141212
  Serious: Yes (Hospitalization)
  Sender: FDA-Public Use
  Company Number: None

PATIENT
  Age: 49 Year
  Sex: Female

DRUGS (4)
  1. BUMEX [Suspect]
     Indication: OEDEMA
     Dosage: 1 TABLET
     Route: 048
  2. LEVOFLOXACIN [Concomitant]
  3. LEVOTHYROXINE [Concomitant]
  4. PAROXETINE [Concomitant]

REACTIONS (3)
  - Hypokalaemia [None]
  - Rhabdomyolysis [None]
  - Renal failure acute [None]
